FAERS Safety Report 20951264 (Version 1)
Quarter: 2022Q2

REPORT INFORMATION
  Report Type: Spontaneous
  Country: GR (occurrence: GR)
  Receive Date: 20220613
  Receipt Date: 20220613
  Transmission Date: 20220721
  Serious: Yes (Other)
  Sender: FDA-Public Use
  Company Number: GR-PFIZER INC-202200781875

PATIENT
  Age: 10 Year
  Sex: Male

DRUGS (3)
  1. METHYLPREDNISOLONE SODIUM SUCCINATE [Suspect]
     Active Substance: METHYLPREDNISOLONE SODIUM SUCCINATE
     Indication: Multisystem inflammatory syndrome
     Route: 042
  2. IMMUNE GLOBULIN NOS [Suspect]
     Active Substance: IMMUNE GLOBULIN NOS
     Indication: Multisystem inflammatory syndrome
     Dosage: SINGLE DOSE
     Route: 042
  3. UNSPECIFIED INGREDIENT [Suspect]
     Active Substance: UNSPECIFIED INGREDIENT
     Indication: Multisystem inflammatory syndrome

REACTIONS (7)
  - Drug ineffective for unapproved indication [Unknown]
  - Off label use [Unknown]
  - Respiratory distress [Recovered/Resolved]
  - Rash [Recovered/Resolved]
  - Laboratory test abnormal [Recovered/Resolved]
  - Inflammatory marker increased [Recovered/Resolved]
  - Hypoalbuminaemia [Recovered/Resolved]
